FAERS Safety Report 9269795 (Version 2)
Quarter: 2013Q2

REPORT INFORMATION
  Report Type: Report from Study
  Country: CA (occurrence: CA)
  Receive Date: 20130503
  Receipt Date: 20130530
  Transmission Date: 20140414
  Serious: Yes (Other)
  Sender: FDA-Public Use
  Company Number: CA-JNJFOC-20130417232

PATIENT
  Age: 51 Year
  Sex: Female
  Weight: 105.24 kg

DRUGS (2)
  1. REMICADE [Suspect]
     Indication: HIDRADENITIS
     Route: 042
     Dates: start: 201212
  2. ISONIAZID [Suspect]
     Indication: TUBERCULOSIS
     Route: 065
     Dates: start: 201209, end: 20130305

REACTIONS (4)
  - Drug-induced liver injury [Unknown]
  - Pancreatic disorder [Unknown]
  - Drug ineffective [Unknown]
  - Off label use [Unknown]
